FAERS Safety Report 7128533-8 (Version None)
Quarter: 2010Q4

REPORT INFORMATION
  Report Type: 
  Country: None (occurrence: None)
  Receive Date: 20101130
  Receipt Date: 20101118
  Transmission Date: 20110411
  Serious: No
  Sender: FDA-Public Use
  Company Number: US-JNJFOC-20101107176

PATIENT
  Sex: Female
  Weight: 77.11 kg

DRUGS (9)
  1. FENTANYL-100 [Suspect]
     Indication: PAIN
     Route: 062
  2. FENTANYL [Suspect]
     Indication: PAIN
     Route: 062
  3. COLCHICINE [Concomitant]
     Indication: BEHCET'S SYNDROME
     Route: 048
  4. VOLTAREN [Concomitant]
     Indication: BEHCET'S SYNDROME
     Route: 048
  5. METHOTREXATE [Concomitant]
     Indication: BEHCET'S SYNDROME
     Route: 048
  6. AYGESTIN [Concomitant]
     Indication: MENSTRUAL DISORDER
     Route: 048
  7. CELEXA [Concomitant]
     Indication: DEPRESSION
     Route: 048
  8. PRILOSEC [Concomitant]
     Indication: BEHCET'S SYNDROME
     Route: 048
  9. FOLIC ACID [Concomitant]
     Indication: NUTRITIONAL SUPPORT
     Route: 048

REACTIONS (9)
  - DIARRHOEA [None]
  - FATIGUE [None]
  - HYPERHIDROSIS [None]
  - INCORRECT DOSE ADMINISTERED [None]
  - NAUSEA [None]
  - PRODUCT ADHESION ISSUE [None]
  - TREMOR [None]
  - WITHDRAWAL SYNDROME [None]
  - WRONG TECHNIQUE IN DRUG USAGE PROCESS [None]
